FAERS Safety Report 6075466 (Version 2)
Quarter: 2013Q1

REPORT INFORMATION
  Report Type: Spontaneous
  Country: US (occurrence: US)
  Receive Date: 20060630
  Receipt Date: 20130322
  Transmission Date: 20140127
  Serious: Yes (Other)
  Sender: FDA-Public Use
  Company Number: US-JNJFOC-20060606275

PATIENT
  Sex: Female
  Weight: 65.77 kg

DRUGS (6)
  1. MOTRIN [Suspect]
     Indication: INTERVERTEBRAL DISC DISORDER
     Route: 048
     Dates: start: 1996
  2. MOTRIN [Suspect]
     Indication: PAIN
     Route: 065
  3. GLUCOTROL [Suspect]
     Indication: DIABETES MELLITUS
     Dates: end: 2005
  4. GLUCOTROL [Suspect]
     Indication: DIABETES MELLITUS
     Dates: start: 2005
  5. STARLIX [Suspect]
     Indication: DIABETES MELLITUS
     Dates: start: 2005, end: 2005
  6. ACTONEL [Concomitant]

REACTIONS (9)
  - Diabetes mellitus [Recovering/Resolving]
  - Dyspnoea [Recovered/Resolved]
  - Formication [Unknown]
  - Feeling hot [Recovered/Resolved]
  - Herpes zoster [Recovering/Resolving]
  - Hyperhidrosis [Recovered/Resolved]
  - Stress [Not Recovered/Not Resolved]
  - Feeling jittery [Recovered/Resolved]
  - Nervousness [Recovered/Resolved]
